FAERS Safety Report 16934574 (Version 3)
Quarter: 2020Q3

REPORT INFORMATION
  Report Type: Spontaneous
  Country: HR (occurrence: HR)
  Receive Date: 20191018
  Receipt Date: 20200826
  Transmission Date: 20201102
  Serious: Yes (Death, Life-Threatening, Hospitalization, Other)
  Sender: FDA-Public Use
  Company Number: NVSC2019HR001999

PATIENT
  Age: 53 Year
  Sex: Male

DRUGS (8)
  1. MYCOPHENOLIC ACID. [Suspect]
     Active Substance: MYCOPHENOLIC ACID
     Indication: RENAL TRANSPLANT
     Dosage: 1000 MG, Q12H
     Route: 065
     Dates: start: 201111
  2. TACROLIMUS. [Suspect]
     Active Substance: TACROLIMUS
     Indication: IMMUNOSUPPRESSANT DRUG THERAPY
  3. PREDNISONE. [Suspect]
     Active Substance: PREDNISONE
     Indication: RENAL TRANSPLANT
     Dosage: 5 MG, QD
     Route: 065
     Dates: start: 201111, end: 201205
  4. PREDNISONE. [Suspect]
     Active Substance: PREDNISONE
     Dosage: 7.5 MG
     Route: 065
  5. MYCOPHENOLIC ACID. [Suspect]
     Active Substance: MYCOPHENOLIC ACID
     Indication: IMMUNOSUPPRESSANT DRUG THERAPY
     Dosage: 540 MG, Q12H
     Route: 065
     Dates: start: 201111, end: 201404
  6. PREDNISONE. [Suspect]
     Active Substance: PREDNISONE
     Indication: IMMUNOSUPPRESSANT DRUG THERAPY
     Dosage: ON TAPERED DOSE
     Route: 065
     Dates: start: 201205, end: 201404
  7. EVEROLIMUS. [Suspect]
     Active Substance: EVEROLIMUS
     Indication: TRANSPLANT DYSFUNCTION
     Dosage: A SMALL DOSE
     Route: 065
  8. TACROLIMUS. [Suspect]
     Active Substance: TACROLIMUS
     Indication: RENAL TRANSPLANT
     Dosage: TACROLIMUS TITRATED TO 4 TO 8 NG/ML
     Route: 065
     Dates: start: 201111, end: 201404

REACTIONS (25)
  - Coma [Fatal]
  - JC virus infection [Fatal]
  - Pyrexia [Fatal]
  - Lymphopenia [Unknown]
  - Progressive multifocal leukoencephalopathy [Fatal]
  - Myalgia [Fatal]
  - Insomnia [Fatal]
  - Motor dysfunction [Fatal]
  - Pneumonia [Unknown]
  - Transplant dysfunction [Unknown]
  - Personality change [Fatal]
  - General physical health deterioration [Fatal]
  - Respiratory failure [Unknown]
  - Staphylococcal infection [Unknown]
  - Product use in unapproved indication [Unknown]
  - Neurological decompensation [Fatal]
  - Haemoglobin decreased [Unknown]
  - Cognitive disorder [Fatal]
  - Immune reconstitution inflammatory syndrome [Fatal]
  - Infection reactivation [Fatal]
  - Speech disorder [Fatal]
  - Depression [Fatal]
  - Mental impairment [Fatal]
  - Pseudomonas infection [Unknown]
  - Leukopenia [Unknown]

NARRATIVE: CASE EVENT DATE: 2014
